FAERS Safety Report 19173535 (Version 1)
Quarter: 2021Q2

REPORT INFORMATION
  Report Type: Spontaneous
  Country: US (occurrence: US)
  Receive Date: 20210423
  Receipt Date: 20210423
  Transmission Date: 20210717
  Serious: Yes (Hospitalization)
  Sender: FDA-Public Use
  Company Number: None

PATIENT
  Sex: Male
  Weight: 80.8 kg

DRUGS (6)
  1. ONCASPAR [Suspect]
     Active Substance: PEGASPARGASE
  2. METHOTREXATE. [Concomitant]
     Active Substance: METHOTREXATE
  3. VINCRISTINE SULFATE. [Concomitant]
     Active Substance: VINCRISTINE SULFATE
  4. CYTARABINE. [Concomitant]
     Active Substance: CYTARABINE
  5. PREDNISOLONE. [Concomitant]
     Active Substance: PREDNISOLONE
  6. DAUNORUBICIN [Concomitant]
     Active Substance: DAUNORUBICIN

REACTIONS (2)
  - Cerebral haemorrhage [None]
  - Cerebral venous sinus thrombosis [None]

NARRATIVE: CASE EVENT DATE: 20210420
